FAERS Safety Report 5756168-8 (Version None)
Quarter: 2008Q2

REPORT INFORMATION
  Report Type: 
  Country: None (occurrence: None)
  Receive Date: 20080602
  Receipt Date: 20080521
  Transmission Date: 20081010
  Serious: Yes (Hospitalization, Other)
  Sender: FDA-Public Use
  Company Number: US-PFIZER INC-2007058100

PATIENT
  Sex: Female

DRUGS (2)
  1. ZOLOFT [Suspect]
     Indication: ANXIETY
     Route: 048
  2. SYNTHROID [Concomitant]

REACTIONS (2)
  - GUN SHOT WOUND [None]
  - SUICIDE ATTEMPT [None]
